FAERS Safety Report 5981583-7 (Version None)
Quarter: 2008Q4

REPORT INFORMATION
  Report Type: 
  Country: None (occurrence: None)
  Receive Date: 20081205
  Receipt Date: 20081124
  Transmission Date: 20090506
  Serious: Yes (Other)
  Sender: FDA-Public Use
  Company Number: DE-CELGENEUS-062-21880-08040296

PATIENT
  Sex: Male
  Weight: 68 kg

DRUGS (1)
  1. REVLIMID [Suspect]
     Indication: ROSAI-DORFMAN SYNDROME
     Route: 048
     Dates: start: 20070201

REACTIONS (1)
  - DISEASE PROGRESSION [None]
